FAERS Safety Report 16441873 (Version 1)
Quarter: 2019Q2

REPORT INFORMATION
  Report Type: Report from Study
  Country: None (occurrence: US)
  Receive Date: 20190617
  Receipt Date: 20190617
  Transmission Date: 20190711
  Serious: No
  Sender: FDA-Public Use
  Company Number: US-US WORLDMEDS, LLC-USW201808-001308

PATIENT
  Age: 63 Year
  Sex: Female

DRUGS (9)
  1. RASAGILINE. [Concomitant]
     Active Substance: RASAGILINE
     Route: 048
  2. APOKYN [Suspect]
     Active Substance: APOMORPHINE HYDROCHLORIDE
     Route: 058
     Dates: start: 20180828
  3. NEUPRO [Concomitant]
     Active Substance: ROTIGOTINE
  4. ENTACAPONE. [Concomitant]
     Active Substance: ENTACAPONE
     Route: 048
  5. NEUPRO [Concomitant]
     Active Substance: ROTIGOTINE
  6. SINEMET [Concomitant]
     Active Substance: CARBIDOPA\LEVODOPA
     Route: 048
  7. APOKYN [Suspect]
     Active Substance: APOMORPHINE HYDROCHLORIDE
     Route: 058
     Dates: start: 20180828
  8. APOKYN [Suspect]
     Active Substance: APOMORPHINE HYDROCHLORIDE
     Indication: PARKINSON^S DISEASE
     Route: 058
     Dates: start: 20180828, end: 20180919
  9. CARBIDOPA / LEVODOPA [Concomitant]
     Active Substance: CARBIDOPA\LEVODOPA
     Dosage: BY MOUTH 4 TIMES DAILY

REACTIONS (5)
  - Contusion [Recovering/Resolving]
  - Erythema [Recovered/Resolved]
  - Therapeutic product effect incomplete [Recovered/Resolved]
  - Drug ineffective [Unknown]
  - Injection site mass [Recovered/Resolved]

NARRATIVE: CASE EVENT DATE: 20180828
